FAERS Safety Report 17758568 (Version 1)
Quarter: 2020Q2

REPORT INFORMATION
  Report Type: Spontaneous
  Country: CA (occurrence: CA)
  Receive Date: 20200507
  Receipt Date: 20200507
  Transmission Date: 20200714
  Serious: Yes (Hospitalization)
  Sender: FDA-Public Use
  Company Number: CA-009507513-2005CAN001445

PATIENT
  Sex: Male
  Weight: 2 kg

DRUGS (3)
  1. REMERON RD [Suspect]
     Active Substance: MIRTAZAPINE
     Indication: ANXIETY
  2. PRISTIQ EXTENDED-RELEASE [Concomitant]
     Active Substance: DESVENLAFAXINE SUCCINATE
     Route: 065
  3. REMERON RD [Suspect]
     Active Substance: MIRTAZAPINE
     Indication: DEPRESSION
     Dosage: 45 MILLIGRAM, 1 EVERY 1 DAYS, DOSAGE FORM TABLET (ORALLY DISINTEGRATING)
     Route: 015

REACTIONS (3)
  - Fatigue [Recovered/Resolved]
  - Tremor [Recovered/Resolved]
  - Poor feeding infant [Recovered/Resolved]
